FAERS Safety Report 9301102 (Version 1)
Quarter: 2013Q2

REPORT INFORMATION
  Report Type: Spontaneous
  Country: US (occurrence: None)
  Receive Date: 20130520
  Receipt Date: 20130520
  Transmission Date: 20140414
  Serious: Yes (Hospitalization)
  Sender: FDA-Public Use
  Company Number: None

PATIENT
  Age: 66 Year
  Sex: Male
  Weight: 108 kg

DRUGS (8)
  1. AFATINIB [Suspect]
     Indication: LARYNGEAL CANCER
     Route: 048
     Dates: start: 20130423, end: 20130515
  2. CARBOPLATIN [Suspect]
     Dosage: 846MG/414MG, DAY1 EVERY 21 DAYS, IV
     Route: 042
     Dates: start: 20130508, end: 20130515
  3. COMPAZINE [Concomitant]
  4. IMMODIUM [Concomitant]
  5. DECADRON [Concomitant]
  6. ONDANSETRON [Concomitant]
  7. ATIVAN [Concomitant]
  8. METOPROLO [Concomitant]

REACTIONS (6)
  - Renal failure acute [None]
  - Neutropenia [None]
  - Hypotension [None]
  - Hyponatraemia [None]
  - Hyperbilirubinaemia [None]
  - Tachycardia [None]
